FAERS Safety Report 14759378 (Version 2)
Quarter: 2018Q2

REPORT INFORMATION
  Report Type: Spontaneous
  Country: JP (occurrence: JP)
  Receive Date: 20180413
  Receipt Date: 20180607
  Transmission Date: 20180711
  Serious: Yes (Other)
  Sender: FDA-Public Use
  Company Number: JP-INCYTE CORPORATION-2018IN003239

PATIENT

DRUGS (2)
  1. HYDREA [Concomitant]
     Active Substance: HYDROXYUREA
     Indication: MYELOFIBROSIS
     Dosage: UNK
     Route: 065
  2. JAKAVI [Suspect]
     Active Substance: RUXOLITINIB
     Indication: MYELOFIBROSIS
     Dosage: 20 MG, UNK
     Route: 048
     Dates: start: 20141001

REACTIONS (6)
  - Pancytopenia [Not Recovered/Not Resolved]
  - Decreased appetite [Unknown]
  - Therapeutic response decreased [Recovering/Resolving]
  - Malaise [Unknown]
  - Quality of life decreased [Recovering/Resolving]
  - Anaemia [Unknown]
